FAERS Safety Report 18994949 (Version 1)
Quarter: 2021Q1

REPORT INFORMATION
  Report Type: Spontaneous
  Country: US (occurrence: US)
  Receive Date: 20210310
  Receipt Date: 20210310
  Transmission Date: 20210420
  Serious: No
  Sender: FDA-Public Use
  Company Number: US-EYEVANCE PHARMACEUTICALS-2020EYE00042

PATIENT
  Age: 71 Year
  Sex: Female

DRUGS (6)
  1. FLAREX [Suspect]
     Active Substance: FLUOROMETHOLONE ACETATE
     Dosage: 1 DROP, EVERY OTHER DAY
     Route: 047
  2. FLAREX [Suspect]
     Active Substance: FLUOROMETHOLONE ACETATE
     Dosage: 1 DROP, 4X/DAY
     Route: 047
  3. FLAREX [Suspect]
     Active Substance: FLUOROMETHOLONE ACETATE
     Dosage: 1 DROP, 2X/DAY
     Route: 047
  4. FLAREX [Suspect]
     Active Substance: FLUOROMETHOLONE ACETATE
     Dosage: 1 DROP, 1X/DAY
     Route: 047
  5. FLAREX [Suspect]
     Active Substance: FLUOROMETHOLONE ACETATE
     Indication: EYE INFECTION
     Dosage: 1 DROP, 4X/DAY
     Route: 047
     Dates: start: 201912
  6. FLAREX [Suspect]
     Active Substance: FLUOROMETHOLONE ACETATE
     Dosage: 1 DROP, 2X/DAY
     Route: 047

REACTIONS (3)
  - Drug ineffective for unapproved indication [Not Recovered/Not Resolved]
  - Eye infection [Not Recovered/Not Resolved]
  - Ocular hyperaemia [Not Recovered/Not Resolved]

NARRATIVE: CASE EVENT DATE: 201912
